FAERS Safety Report 21516341 (Version 1)
Quarter: 2022Q4

REPORT INFORMATION
  Report Type: Report from Study
  Country: BR (occurrence: BR)
  Receive Date: 20221027
  Receipt Date: 20221027
  Transmission Date: 20230113
  Serious: Yes (Hospitalization, Other)
  Sender: FDA-Public Use
  Company Number: BR-009507513-2004BRA001623

PATIENT
  Age: 61 Year
  Sex: Female
  Weight: 55 kg

DRUGS (22)
  1. PACLITAXEL [Suspect]
     Active Substance: PACLITAXEL
     Indication: Non-small cell lung cancer stage IV
     Dosage: FREQUENCY TEXT: ON DAYS 1, 8, AND 15 OF EACH CYCLE Q3W?100 MILLIGRAM/SQ. METER
     Route: 042
     Dates: start: 20200319, end: 20200319
  2. PACLITAXEL [Suspect]
     Active Substance: PACLITAXEL
     Dosage: FREQUENCY TEXT: ON DAYS 1, 8, AND 15 OF EACH CYCLE Q3W?100 MILLIGRAM/SQ. METER
     Route: 042
     Dates: start: 20200416, end: 20200423
  3. PACLITAXEL [Suspect]
     Active Substance: PACLITAXEL
     Dosage: FREQUENCY TEXT: NOT PROVIDED
     Route: 042
     Dates: end: 20200625
  4. PACLITAXEL [Suspect]
     Active Substance: PACLITAXEL
     Dosage: FREQUENCY TEXT: ON DAYS 1, 8, AND 15 OF EACH CYCLE Q3W?100 MILLIGRAM/SQ. METER
     Route: 042
     Dates: start: 20200305, end: 20200312
  5. CARBOPLATIN [Suspect]
     Active Substance: CARBOPLATIN
     Indication: Non-small cell lung cancer stage IV
     Dosage: (AUC) OF 6 MG/ML/MIN
     Route: 042
     Dates: start: 20200416
  6. CARBOPLATIN [Suspect]
     Active Substance: CARBOPLATIN
     Dosage: FREQUENCY TEXT: UNKNOWN
     Route: 042
     Dates: end: 20200610
  7. CARBOPLATIN [Suspect]
     Active Substance: CARBOPLATIN
     Dosage: (AUC) OF 6 MG/ML/MIN
     Route: 042
     Dates: start: 20200305, end: 20200305
  8. PEMBROLIZUMAB [Suspect]
     Active Substance: PEMBROLIZUMAB
     Indication: Non-small cell lung cancer stage IV
     Dosage: 200 MILLIGRAM
     Route: 042
     Dates: start: 20200416
  9. PEMBROLIZUMAB [Suspect]
     Active Substance: PEMBROLIZUMAB
     Dosage: FREQUENCY TEXT: UNKNOWN
     Route: 042
     Dates: end: 20200610
  10. PEMBROLIZUMAB [Suspect]
     Active Substance: PEMBROLIZUMAB
     Dosage: 200 MILLIGRAM
     Route: 042
     Dates: start: 20200305, end: 20200305
  11. ENALAPRIL MALEATE [Concomitant]
     Active Substance: ENALAPRIL MALEATE
     Indication: Hypertension
     Dosage: 20 MILLIGRAM
     Route: 048
     Dates: start: 201601
  12. ATENOLOL [Concomitant]
     Active Substance: ATENOLOL
     Indication: Hypertension
     Dosage: 50 MILLIGRAM
     Route: 048
     Dates: start: 201601
  13. Alenia [Concomitant]
     Indication: Chronic obstructive pulmonary disease
     Dosage: 2 SPRAY
     Route: 055
     Dates: start: 201001
  14. MORPHINE [Concomitant]
     Active Substance: MORPHINE
     Indication: Pain
     Dosage: 40 MILLIGRAM
     Route: 048
     Dates: start: 201901
  15. METAMIZOLE SODIUM [Concomitant]
     Active Substance: METAMIZOLE SODIUM
     Indication: Pain
     Dosage: 4 GRAM
     Route: 048
     Dates: start: 201901
  16. ACETAMINOPHEN [Concomitant]
     Active Substance: ACETAMINOPHEN
     Indication: Pain
     Dosage: 3 GRAM
     Route: 065
     Dates: start: 201901
  17. PREGABALIN [Concomitant]
     Active Substance: PREGABALIN
     Indication: Pain
     Dosage: 300 MILLIGRAM
     Route: 048
     Dates: start: 201901
  18. HUMAN RED BLOOD CELL [Concomitant]
     Active Substance: HUMAN RED BLOOD CELL
     Indication: Anaemia
     Dosage: 800 MILLILITER
     Route: 042
     Dates: start: 20200327, end: 20200327
  19. NORFLOXACIN [Concomitant]
     Active Substance: NORFLOXACIN
     Indication: Urinary tract infection
     Dosage: 400 MILLIGRAM
     Route: 065
     Dates: start: 20200328, end: 20200409
  20. ONDANSETRON HCL [Concomitant]
     Active Substance: ONDANSETRON HYDROCHLORIDE
     Indication: Nausea
     Dosage: 8 MILLIGRAM
     Route: 065
     Dates: start: 20200307
  21. DIMENHYDRINATE [Concomitant]
     Active Substance: DIMENHYDRINATE
     Indication: Nausea
     Dosage: 50 MILLIGRAM
     Route: 065
     Dates: start: 20200319
  22. NYSTATIN [Concomitant]
     Active Substance: NYSTATIN
     Indication: Oral candidiasis
     Route: 065

REACTIONS (1)
  - Acute kidney injury [Recovered/Resolved]

NARRATIVE: CASE EVENT DATE: 20200402
